FAERS Safety Report 5492185-3 (Version None)
Quarter: 2007Q4

REPORT INFORMATION
  Report Type: 
  Country: None (occurrence: None)
  Receive Date: 20071022
  Receipt Date: 20071011
  Transmission Date: 20080405
  Serious: Yes (Hospitalization)
  Sender: FDA-Public Use
  Company Number: FR-ROCHE-525041

PATIENT
  Age: 44 Year
  Sex: Male

DRUGS (1)
  1. VALIUM [Suspect]
     Route: 065
     Dates: start: 20030101

REACTIONS (1)
  - CATARACT [None]
